FAERS Safety Report 5890902-1 (Version None)
Quarter: 2008Q3

REPORT INFORMATION
  Report Type: 
  Country: None (occurrence: None)
  Receive Date: 20080922
  Receipt Date: 20080916
  Transmission Date: 20090109
  Serious: Yes (Other)
  Sender: FDA-Public Use
  Company Number: A0646992A

PATIENT
  Age: 76 Year
  Sex: Male

DRUGS (2)
  1. ADVAIR DISKUS 100/50 [Suspect]
     Indication: PNEUMONIA
     Dosage: 1PUFF TWICE PER DAY
     Route: 055
     Dates: start: 20070201
  2. LOTREL [Concomitant]

REACTIONS (7)
  - BRONCHITIS [None]
  - DEVICE INEFFECTIVE [None]
  - DRUG INEFFECTIVE [None]
  - DYSPNOEA [None]
  - INCORRECT DOSE ADMINISTERED [None]
  - PHARMACEUTICAL PRODUCT COMPLAINT [None]
  - PNEUMONIA [None]
